FAERS Safety Report 16814261 (Version 1)
Quarter: 2019Q3

REPORT INFORMATION
  Report Type: Spontaneous
  Country: US (occurrence: US)
  Receive Date: 20190917
  Receipt Date: 20190917
  Transmission Date: 20191005
  Serious: No
  Sender: FDA-Public Use
  Company Number: US-ALLERGAN-1929888US

PATIENT
  Age: 72 Year
  Sex: Female

DRUGS (3)
  1. SUCRALFATE TEVA [Suspect]
     Active Substance: SUCRALFATE
     Indication: ABDOMINAL PAIN UPPER
     Dosage: 1 G, QID
     Route: 048
     Dates: start: 20190629, end: 20190701
  2. CARAFATE [Suspect]
     Active Substance: SUCRALFATE
     Dosage: 1 G, BID
  3. CARAFATE [Suspect]
     Active Substance: SUCRALFATE
     Indication: ABDOMINAL PAIN UPPER
     Dosage: 1 G, QID
     Route: 048
     Dates: start: 20190701, end: 20190705

REACTIONS (11)
  - Abdominal pain upper [Unknown]
  - Allergic reaction to excipient [Unknown]
  - Off label use [Unknown]
  - Lichen sclerosus [Unknown]
  - Pruritus [Recovered/Resolved]
  - Blood glucose decreased [Unknown]
  - Tremor [Unknown]
  - Constipation [Recovered/Resolved]
  - Increased appetite [Unknown]
  - Intentional product misuse [Unknown]
  - Blister [Recovered/Resolved]
